FAERS Safety Report 5365691-X (Version None)
Quarter: 2007Q2

REPORT INFORMATION
  Report Type: 
  Country: None (occurrence: None)
  Receive Date: 20070611
  Receipt Date: 20061207
  Transmission Date: 20071010
  Serious: Yes (Other)
  Sender: FDA-Public Use
  Company Number: USA-2006-0025899

PATIENT
  Age: 20 Year
  Sex: Female

DRUGS (3)
  1. OXYCONTIN [Suspect]
     Indication: DRUG ABUSER
  2. COCAINE (COCAINE) [Suspect]
     Indication: DRUG ABUSER
  3. ALCOHOL (ETHANOL) [Suspect]
     Indication: ALCOHOLISM

REACTIONS (3)
  - EUPHORIC MOOD [None]
  - INSOMNIA [None]
  - SUBSTANCE ABUSE [None]
